FAERS Safety Report 14177529 (Version 2)
Quarter: 2017Q4

REPORT INFORMATION
  Report Type: Spontaneous
  Country: FR (occurrence: FR)
  Receive Date: 20171110
  Receipt Date: 20171120
  Transmission Date: 20180321
  Serious: Yes (Other)
  Sender: FDA-Public Use
  Company Number: FR-MERCK KGAA-2033798

PATIENT
  Age: 63 Year
  Sex: Female

DRUGS (2)
  1. NOVOTHYROX [Suspect]
     Active Substance: LEVOTHYROXINE SODIUM
     Indication: HYPOTHYROIDISM
     Dates: start: 201708
  2. NOVOTHYROX [Suspect]
     Active Substance: LEVOTHYROXINE SODIUM

REACTIONS (14)
  - Abdominal pain [None]
  - Bone pain [None]
  - Dyspnoea [None]
  - Urticaria [Recovered/Resolved]
  - Weight decreased [None]
  - Fatigue [None]
  - Palpitations [None]
  - Tremor [None]
  - Bradycardia [None]
  - Arthralgia [None]
  - Blood thyroid stimulating hormone increased [None]
  - Insomnia [None]
  - Diarrhoea [None]
  - Headache [None]

NARRATIVE: CASE EVENT DATE: 2017
